FAERS Safety Report 7794644-7 (Version None)
Quarter: 2011Q4

REPORT INFORMATION
  Report Type: 
  Country: None (occurrence: None)
  Receive Date: 20111004
  Receipt Date: 20110926
  Transmission Date: 20120403
  Serious: Yes (Disabling)
  Sender: FDA-Public Use
  Company Number: HR-ROCHE-776386

PATIENT
  Sex: Female
  Weight: 68 kg

DRUGS (8)
  1. HERCEPTIN [Suspect]
     Indication: BREAST CANCER METASTATIC
     Dosage: LOADING DOSE (DAY 2, CYCLE 1)
     Route: 042
  2. XELODA [Suspect]
     Indication: BREAST CANCER METASTATIC
     Dosage: DOSE: 1250MG TWICE DAILY (TTD: 2500MG) ON TREATMENT DAYS
     Route: 048
  3. LISINOPRIL AND HYDROCHLOROTHIAZIDE [Concomitant]
     Indication: HYPERTENSION
     Dosage: TAKEN FOR 10 YEARS
  4. LISINOPRIL [Concomitant]
  5. PERTUZUMAB [Suspect]
     Indication: BREAST CANCER METASTATIC
     Dosage: LOADING DOSE (DAY 1, CYCLE 1)
     Route: 042
  6. HERCEPTIN [Suspect]
     Dosage: MAINTENANCE DOSE (CYCLE 2 + ONWARD). LAST DOSE PRIOR TO SAE: 26 APR 2011
     Route: 042
  7. GLICLAZIDE [Concomitant]
  8. PERTUZUMAB [Suspect]
     Dosage: MAINTENANCE DOSE (CYCLE 2 + ONWARD). LAST DOSE PRIOR TO SAE: 26 APR 2011
     Route: 042

REACTIONS (1)
  - LEFT VENTRICULAR DYSFUNCTION [None]
